FAERS Safety Report 7907416-7 (Version None)
Quarter: 2011Q4

REPORT INFORMATION
  Report Type: 
  Country: None (occurrence: None)
  Receive Date: 20111109
  Receipt Date: 20111025
  Transmission Date: 20120403
  Serious: Yes (Other)
  Sender: FDA-Public Use
  Company Number: THQ2011A07082

PATIENT
  Age: 51 Year
  Sex: Male

DRUGS (7)
  1. POLYVITAMIN (VITAMINS NOS) [Concomitant]
  2. FERROUS GLUCONATE [Concomitant]
  3. PIOGLITAZONE HYDROCHLORIDE [Suspect]
     Indication: PRODUCT USED FOR UNKNOWN INDICATION
     Dosage: 15 MG (15 MG,1 IN 1 D) PER ORAL ; 30 MG (30 MG,1 IN 1 D) PER ORAL
     Route: 048
     Dates: start: 20091030
  4. ENALAPRIL MALEATE [Concomitant]
  5. VILDAGLIPTIN [Concomitant]
  6. GLIMEPIRIDE [Concomitant]
  7. METFORMIN [Concomitant]

REACTIONS (6)
  - OEDEMA PERIPHERAL [None]
  - DEHYDRATION [None]
  - HYPOTENSION [None]
  - DIARRHOEA [None]
  - LOSS OF CONSCIOUSNESS [None]
  - PROTEINURIA [None]
